FAERS Safety Report 8385249-8 (Version None)
Quarter: 2012Q2

REPORT INFORMATION
  Report Type: 
  Country: None (occurrence: None)
  Receive Date: 20120525
  Receipt Date: 20120518
  Transmission Date: 20120825
  Serious: No
  Sender: FDA-Public Use
  Company Number: US-BIOGENIDEC-2012BI003487

PATIENT
  Sex: Female

DRUGS (4)
  1. OXYCODONE HCL [Concomitant]
     Indication: PAIN IN EXTREMITY
  2. AMPYRA [Concomitant]
     Indication: MULTIPLE SCLEROSIS
     Dates: start: 20110101
  3. AMPYRA [Concomitant]
     Indication: MUSCLE SPASTICITY
     Dates: start: 20110101
  4. TYSABRI [Suspect]
     Indication: MULTIPLE SCLEROSIS
     Route: 042
     Dates: start: 20110301

REACTIONS (9)
  - BALANCE DISORDER [None]
  - FALL [None]
  - CATARACT OPERATION [None]
  - CATARACT [None]
  - URINE ODOUR ABNORMAL [None]
  - VISION BLURRED [None]
  - BLINDNESS UNILATERAL [None]
  - URINARY TRACT INFECTION [None]
  - DRY MOUTH [None]
